FAERS Safety Report 11427144 (Version 1)
Quarter: 2015Q3

REPORT INFORMATION
  Report Type: Spontaneous
  Country: US (occurrence: US)
  Receive Date: 20150827
  Receipt Date: 20150827
  Transmission Date: 20151125
  Serious: No
  Sender: FDA-Public Use
  Company Number: US-009507513-1508USA007950

PATIENT
  Age: 17 Year
  Sex: Female
  Weight: 89.34 kg

DRUGS (2)
  1. NEXPLANON [Suspect]
     Active Substance: ETONOGESTREL
     Indication: CONTRACEPTION
     Dosage: 3 YEAR IMPLANT IN RIGHT ARM
     Route: 059
     Dates: start: 20130712
  2. NEXPLANON [Suspect]
     Active Substance: ETONOGESTREL
     Indication: MENSTRUATION IRREGULAR

REACTIONS (6)
  - Depressed mood [Unknown]
  - Dysmenorrhoea [Unknown]
  - Drug administration error [Unknown]
  - Menorrhagia [Recovered/Resolved]
  - Amenorrhoea [Recovered/Resolved]
  - Menometrorrhagia [Unknown]

NARRATIVE: CASE EVENT DATE: 20130712
